FAERS Safety Report 8030498 (Version 2)
Quarter: 2013Q4

REPORT INFORMATION
  Report Type: Spontaneous
  Country: US (occurrence: US)
  Receive Date: 20110712
  Receipt Date: 20131226
  Transmission Date: 20140711
  Serious: Yes (Hospitalization, Other)
  Sender: FDA-Public Use
  Company Number: US-ELI_LILLY_AND_COMPANY-US_0404102049

PATIENT
  Age: 64 Year
  Sex: Female

DRUGS (10)
  1. OLANZAPINE [Suspect]
     Indication: BIPOLAR DISORDER
     Dosage: 11.25 MG, DAILY (1/D)
  2. DIVALPROEX SODIUM [Concomitant]
     Dosage: 1500 MG, DAILY (1/D)
  3. GLIPIZIDE [Concomitant]
     Dosage: 10 MG, EACH EVENING
  4. FUROSEMIDE [Concomitant]
     Dosage: 20 MG, DAILY (1/D)
  5. ATORVASTATIN [Concomitant]
     Dosage: 10 MG, EACH EVENING
  6. LISINOPRIL [Concomitant]
     Dosage: 20 MG, DAILY (1/D)
  7. FERROUS SULFATE [Concomitant]
     Dosage: 300 MG, 2/D
  8. DOCUSATE SODIUM [Concomitant]
     Dosage: 100 MG, 2/D
  9. SENNA [Concomitant]
     Dosage: 187 MG, EACH EVENING
  10. PILOCARPINE [Concomitant]
     Dosage: 1 UNK, DAILY (1/D)
     Route: 047

REACTIONS (2)
  - Hypothermia [Recovered/Resolved]
  - Mania [Recovered/Resolved]
